FAERS Safety Report 25407321 (Version 1)
Quarter: 2025Q2

REPORT INFORMATION
  Report Type: Spontaneous
  Country: CN (occurrence: CN)
  Receive Date: 20250606
  Receipt Date: 20250606
  Transmission Date: 20250717
  Serious: Yes (Other)
  Sender: PFIZER
  Company Number: CN-PFIZER INC-PV202500066600

PATIENT
  Age: 11 Year
  Sex: Male
  Weight: 36.8 kg

DRUGS (1)
  1. CYTARABINE [Suspect]
     Active Substance: CYTARABINE
     Indication: Acute lymphocytic leukaemia
     Dosage: 370.000 MG, 1X/DAY
     Route: 041
     Dates: start: 20250527, end: 20250527

REACTIONS (2)
  - Pyrexia [Recovering/Resolving]
  - Conjunctival hyperaemia [Unknown]

NARRATIVE: CASE EVENT DATE: 20250527
